FAERS Safety Report 4651976-9 (Version None)
Quarter: 2005Q2

REPORT INFORMATION
  Report Type: 
  Country: None (occurrence: None)
  Receive Date: 20050502
  Receipt Date: 20050420
  Transmission Date: 20051028
  Serious: Yes (Other)
  Sender: FDA-Public Use
  Company Number: 05-04-0696

PATIENT
  Sex: Male

DRUGS (2)
  1. TRAMADOL HCL [Suspect]
     Dosage: ORAL
     Route: 048
  2. ALLOPURINOL [Concomitant]

REACTIONS (2)
  - HALLUCINATION, AUDITORY [None]
  - PARANOIA [None]
